FAERS Safety Report 6196718-3 (Version None)
Quarter: 2009Q2

REPORT INFORMATION
  Report Type: 
  Country: None (occurrence: None)
  Receive Date: 20090518
  Receipt Date: 20090518
  Transmission Date: 20091009
  Serious: Yes (Death)
  Sender: FDA-Public Use
  Company Number: None

PATIENT
  Age: 68 Year
  Sex: Female

DRUGS (10)
  1. ALENDRONATE SODIUM [Suspect]
     Indication: OSTEOPOROSIS
     Dosage: ONE TABLET WEEKLY
     Dates: start: 20080901, end: 20090101
  2. ALENDRONATE SODIUM [Suspect]
  3. LIPITOR [Concomitant]
  4. SYNTHROID [Concomitant]
  5. SINGULAIR [Concomitant]
  6. EVISTA [Concomitant]
  7. FLUTICASONE NS [Concomitant]
  8. VAGIFEM [Concomitant]
  9. AMMONIUM [Concomitant]
  10. FOSAMAX [Concomitant]

REACTIONS (2)
  - ALOPECIA [None]
  - PRODUCT SUBSTITUTION ISSUE [None]
